FAERS Safety Report 9585493 (Version 1)
Quarter: 2013Q4

REPORT INFORMATION
  Report Type: Spontaneous
  Country: BR (occurrence: BR)
  Receive Date: 20131003
  Receipt Date: 20131003
  Transmission Date: 20140711
  Serious: Yes (Death, Hospitalization)
  Sender: FDA-Public Use
  Company Number: BR-AMGEN-BRASP2013068531

PATIENT
  Age: 88 Year
  Sex: Male

DRUGS (7)
  1. PROLIA [Suspect]
     Indication: RHEUMATIC DISORDER
     Dosage: 60MGML SEE DOSAGE TEXT
     Route: 042
     Dates: start: 20130531
  2. DONAREN [Concomitant]
     Dosage: UNK
  3. RIVASTIGMINE HYDROGEN TARTRATE [Concomitant]
     Dosage: UNK
  4. SUSTRATE [Concomitant]
     Dosage: UNK
  5. AAS [Concomitant]
     Dosage: UNK
  6. DIGOXIN [Concomitant]
     Dosage: UNK
  7. CIPROFLOXACIN [Concomitant]
     Dosage: UNK

REACTIONS (2)
  - Death [Fatal]
  - Hospitalisation [Unknown]
